FAERS Safety Report 9586924 (Version 1)
Quarter: 2013Q4

REPORT INFORMATION
  Report Type: Spontaneous
  Country: IT (occurrence: FR)
  Receive Date: 20131003
  Receipt Date: 20131003
  Transmission Date: 20140711
  Serious: Yes (Hospitalization)
  Sender: FDA-Public Use
  Company Number: FR-FRI-1000049235

PATIENT
  Age: 85 Year
  Sex: Female

DRUGS (9)
  1. NEBIVOLOL [Suspect]
     Dosage: 2.5 MG
     Route: 048
     Dates: end: 20130823
  2. TAREG [Concomitant]
     Route: 048
  3. LASILIX [Concomitant]
     Dosage: 40 MG
     Route: 048
     Dates: end: 2013
  4. LASILIX [Concomitant]
     Dosage: 20 MG
     Route: 048
     Dates: start: 2013
  5. KARDEGIC [Concomitant]
     Dosage: 75 MG
     Route: 048
  6. ELISOR [Concomitant]
     Dosage: 20 MG
     Route: 048
  7. NOVATREX [Concomitant]
  8. SPECIAFOLDINE [Concomitant]
     Route: 048
  9. LAMALINE [Concomitant]
     Route: 048

REACTIONS (2)
  - Bradycardia [Recovered/Resolved]
  - Ventricular extrasystoles [Recovered/Resolved]
